FAERS Safety Report 19958192 (Version 1)
Quarter: 2021Q4

REPORT INFORMATION
  Report Type: Spontaneous
  Country: US (occurrence: US)
  Receive Date: 20211015
  Receipt Date: 20211015
  Transmission Date: 20220303
  Serious: Yes (Other)
  Sender: FDA-Public Use
  Company Number: US-BAYER-2021A229954

PATIENT
  Sex: Female

DRUGS (3)
  1. LOTRIMIN AF ANTIFUNGAL [Suspect]
     Active Substance: MICONAZOLE NITRATE
     Indication: Scar
     Route: 061
  2. LOTRIMIN ANTIFUNGAL (MICONAZOLE NITRATE) [Suspect]
     Active Substance: MICONAZOLE NITRATE
     Indication: Scar
     Route: 061
  3. TINACTIN [Suspect]
     Active Substance: TOLNAFTATE
     Indication: Scar
     Route: 061

REACTIONS (3)
  - Sepsis [Unknown]
  - Skin infection [Unknown]
  - Extra dose administered [Unknown]
